FAERS Safety Report 5397605-0 (Version None)
Quarter: 2007Q3

REPORT INFORMATION
  Report Type: 
  Country: None (occurrence: None)
  Receive Date: 20070726
  Receipt Date: 20070718
  Transmission Date: 20080115
  Serious: Yes (Hospitalization, Other)
  Sender: FDA-Public Use
  Company Number: US-JNJFOC-20070704447

PATIENT
  Sex: Female
  Weight: 97.07 kg

DRUGS (7)
  1. INVEGA [Suspect]
     Indication: PSYCHOTIC DISORDER
     Route: 048
  2. VIVELLE [Concomitant]
     Indication: HORMONE REPLACEMENT THERAPY
  3. ZOLOFT [Concomitant]
  4. KLONOPIN [Concomitant]
  5. TRAZODONE HCL [Concomitant]
  6. FISH OIL [Concomitant]
  7. VITAMIN B-12 [Concomitant]

REACTIONS (10)
  - BACK PAIN [None]
  - CHEST PAIN [None]
  - DYSARTHRIA [None]
  - FEELING HOT [None]
  - GAIT DISTURBANCE [None]
  - MEMORY IMPAIRMENT [None]
  - MUSCLE SPASMS [None]
  - NAUSEA [None]
  - STOMACH DISCOMFORT [None]
  - VISION BLURRED [None]
